FAERS Safety Report 24566216 (Version 1)
Quarter: 2024Q4

REPORT INFORMATION
  Report Type: Spontaneous
  Country: GB (occurrence: GB)
  Receive Date: 20241030
  Receipt Date: 20241030
  Transmission Date: 20250114
  Serious: Yes (Other)
  Sender: ELI LILLY AND COMPANY
  Company Number: GB-MHRA-TPP24497274C967499YC1729514232916

PATIENT
  Age: 28 Year
  Sex: Male
  Weight: 65 kg

DRUGS (3)
  1. MOUNJARO [Suspect]
     Active Substance: TIRZEPATIDE
     Indication: Ill-defined disorder
     Dosage: UNK UNK, UNKNOWN
     Route: 065
     Dates: start: 20240923
  2. AUDAVATE [Concomitant]
     Indication: Ill-defined disorder
     Dosage: TO BE APPLIED SPARINGLY TO THE AFFECTED AREA(S)...
     Dates: start: 20241014
  3. BETNOVATE [Concomitant]
     Active Substance: BETAMETHASONE
     Indication: Ill-defined disorder
     Dosage: TO BE APPLIED SPARINGLY TO THE AFFECTED AREA(S)...
     Dates: start: 20241018

REACTIONS (3)
  - Purpura [Recovering/Resolving]
  - Hepatic enzyme increased [Recovering/Resolving]
  - Off label use [Unknown]

NARRATIVE: CASE EVENT DATE: 20241010
